FAERS Safety Report 24238748 (Version 1)
Quarter: 2024Q3

REPORT INFORMATION
  Report Type: Spontaneous
  Country: US (occurrence: US)
  Receive Date: 20240822
  Receipt Date: 20240822
  Transmission Date: 20241016
  Serious: No
  Sender: PFIZER
  Company Number: US-PFIZER INC-202400239610

PATIENT
  Age: 71 Year
  Sex: Male

DRUGS (20)
  1. PAXLOVID [Suspect]
     Active Substance: NIRMATRELVIR\RITONAVIR
     Indication: COVID-19 treatment
     Dosage: [NIRMATRELVIR 300 MG]/[RITONAVIR 100 MG]; 2X/DAY
     Dates: start: 20240806, end: 20240811
  2. ALBUTEROL [Concomitant]
     Active Substance: ALBUTEROL
     Dosage: UNK
     Dates: start: 20240806, end: 202408
  3. ARTIFICIAL TEARS [CARMELLOSE SODIUM] [Concomitant]
     Dosage: UNK
     Dates: start: 202101, end: 202408
  4. BENZONATATE [Concomitant]
     Active Substance: BENZONATATE
     Dosage: UNK
     Dates: start: 20240806, end: 202408
  5. BRIMONIDINE [Concomitant]
     Active Substance: BRIMONIDINE TARTRATE
     Dosage: UNK
     Dates: start: 202104, end: 202408
  6. CETIRIZINE [Concomitant]
     Active Substance: CETIRIZINE HYDROCHLORIDE
     Dosage: UNK
     Dates: start: 202105, end: 202408
  7. CROMOLYN [Concomitant]
     Active Substance: CROMOLYN
     Dosage: UNK
     Dates: start: 20240806, end: 202408
  8. CYANOCOBALAMIN [Concomitant]
     Active Substance: CYANOCOBALAMIN
     Dosage: UNK
     Dates: start: 202111, end: 202408
  9. DORZOLAMIDE HYDROCHLORIDE\TIMOLOL MALEATE [Concomitant]
     Active Substance: DORZOLAMIDE HYDROCHLORIDE\TIMOLOL MALEATE
     Dosage: UNK
     Dates: start: 202101, end: 202408
  10. DUTASTERIDE [Concomitant]
     Active Substance: DUTASTERIDE
     Dosage: UNK
     Dates: start: 202107, end: 202408
  11. FLUOCINONIDE [Concomitant]
     Active Substance: FLUOCINONIDE
     Dosage: UNK
     Dates: start: 202202, end: 202408
  12. GABAPENTIN [Concomitant]
     Active Substance: GABAPENTIN
     Dosage: UNK
     Dates: start: 202108, end: 202408
  13. LATANOPROST [Concomitant]
     Active Substance: LATANOPROST
     Dosage: UNK
     Dates: start: 202101, end: 202408
  14. LOSARTAN [Concomitant]
     Active Substance: LOSARTAN\LOSARTAN POTASSIUM
     Dosage: UNK
     Dates: start: 202201, end: 202408
  15. OSIMERTINIB [Concomitant]
     Active Substance: OSIMERTINIB
     Dosage: UNK
     Dates: start: 202112, end: 202408
  16. OXYBUTYNIN [Concomitant]
     Active Substance: OXYBUTYNIN\OXYBUTYNIN CHLORIDE
     Dosage: UNK
     Dates: start: 202408, end: 202408
  17. TAMSULOSIN [Concomitant]
     Active Substance: TAMSULOSIN
     Dosage: UNK
     Dates: start: 202107, end: 202408
  18. UREA [Concomitant]
     Active Substance: UREA
     Dosage: UNK
     Dates: start: 202203, end: 202408
  19. ZINC OXIDE [Concomitant]
     Active Substance: ZINC OXIDE
     Dosage: UNK
     Dates: start: 202205, end: 202408
  20. MULTIVITAMINS WITH MINERALS [CALCIUM PANTOTHENATE;CHOLINE;CYANOCOBALAM [Concomitant]
     Dosage: UNK
     Dates: start: 200711, end: 202408

REACTIONS (2)
  - COVID-19 [Unknown]
  - Disease recurrence [Unknown]

NARRATIVE: CASE EVENT DATE: 20240816
